FAERS Safety Report 7921305-3 (Version None)
Quarter: 2011Q4

REPORT INFORMATION
  Report Type: 
  Country: None (occurrence: None)
  Receive Date: 20111117
  Receipt Date: 20111107
  Transmission Date: 20120403
  Serious: Yes (Hospitalization)
  Sender: FDA-Public Use
  Company Number: US-BAYER-2011-032937

PATIENT
  Age: 16 Year
  Sex: Female
  Weight: 70 kg

DRUGS (4)
  1. AZITHROMYCIN [Concomitant]
  2. DROSPIRENONE AND ETHINYL ESTRADIOL [Suspect]
     Dosage: UNK
     Dates: start: 20080101, end: 20090101
  3. VICODIN [Concomitant]
     Indication: PAIN
  4. YASMIN [Suspect]
     Dosage: UNK
     Dates: start: 20080101, end: 20090101

REACTIONS (2)
  - PULMONARY EMBOLISM [None]
  - PAIN [None]
